FAERS Safety Report 5140245-9 (Version None)
Quarter: 2006Q4

REPORT INFORMATION
  Report Type: 
  Country: None (occurrence: None)
  Receive Date: 20061025
  Receipt Date: 20061016
  Transmission Date: 20070319
  Serious: Yes (Hospitalization, Other)
  Sender: FDA-Public Use
  Company Number: 2006SP004437

PATIENT
  Sex: 0

DRUGS (1)
  1. TEMODAR [Suspect]
     Indication: BRAIN NEOPLASM MALIGNANT
     Dosage: PO
     Route: 048

REACTIONS (1)
  - THROMBOSIS [None]
